FAERS Safety Report 22305656 (Version 1)
Quarter: 2023Q2

REPORT INFORMATION
  Report Type: Spontaneous
  Country: US (occurrence: None)
  Receive Date: 20230510
  Receipt Date: 20230510
  Transmission Date: 20230722
  Serious: No
  Sender: FDA-Public Use
  Company Number: 2023A105986

PATIENT
  Age: 85 Year
  Sex: Female
  Weight: 71.7 kg

DRUGS (1)
  1. TAGRISSO [Suspect]
     Active Substance: OSIMERTINIB
     Indication: Lung neoplasm malignant
     Route: 048
     Dates: start: 20230421

REACTIONS (2)
  - Mucosal inflammation [Unknown]
  - Epistaxis [Unknown]

NARRATIVE: CASE EVENT DATE: 20230403
